FAERS Safety Report 7824709-2 (Version None)
Quarter: 2011Q4

REPORT INFORMATION
  Report Type: 
  Country: None (occurrence: None)
  Receive Date: 20111019
  Receipt Date: 20111010
  Transmission Date: 20120403
  Serious: Yes (Other)
  Sender: FDA-Public Use
  Company Number: PHHY2011FR72303

PATIENT
  Sex: Female
  Weight: 78.3 kg

DRUGS (7)
  1. CLOZAPINE [Suspect]
     Dates: start: 20101215, end: 20110215
  2. PAROXETINE HCL [Concomitant]
     Dosage: 20 MG, 2DF ONCE DAILY
     Route: 048
     Dates: start: 20071201
  3. CLOZAPINE [Suspect]
     Indication: IMPULSE-CONTROL DISORDER
     Dosage: 300 MG, [3DF DAILY (0-0-3)]
     Dates: start: 20061214
  4. EFFEXOR [Concomitant]
     Dosage: 75 MG, BID
  5. EFFEXOR [Concomitant]
     Dosage: 75 MG, CAPS ONCE DAILY
     Dates: start: 20070201
  6. LEVOTHYROXINE SODIUM [Concomitant]
  7. PRAZEPAM [Concomitant]
     Dosage: 10 MG, 1 TO 2 TABLETS PER DAY

REACTIONS (10)
  - DEPRESSION [None]
  - AUTONOMIC NERVOUS SYSTEM IMBALANCE [None]
  - WHITE BLOOD CELL COUNT DECREASED [None]
  - LETHARGY [None]
  - SOMNOLENCE [None]
  - WEIGHT INCREASED [None]
  - DRUG INEFFECTIVE [None]
  - ANXIETY [None]
  - ABNORMAL BEHAVIOUR [None]
  - FATIGUE [None]
